FAERS Safety Report 14979408 (Version 1)
Quarter: 2018Q2

REPORT INFORMATION
  Report Type: Spontaneous
  Country: CA (occurrence: CA)
  Receive Date: 20180516
  Receipt Date: 20180516
  Transmission Date: 20180711
  Serious: Yes (Other)
  Sender: FDA-Public Use
  Company Number: None

PATIENT
  Age: 60 Year
  Sex: Male
  Weight: 78.3 kg

DRUGS (1)
  1. LIDOCAINE HYDROCHLORIDE INJECTION [Suspect]
     Active Substance: LIDOCAINE HYDROCHLORIDE
     Indication: LOCAL ANAESTHESIA
     Route: 030
     Dates: start: 20180508, end: 20180515

REACTIONS (4)
  - Joint swelling [None]
  - Rash pruritic [None]
  - Pruritus [None]
  - Injection site erythema [None]

NARRATIVE: CASE EVENT DATE: 20180516
